FAERS Safety Report 5126593-7 (Version None)
Quarter: 2006Q4

REPORT INFORMATION
  Report Type: 
  Country: None (occurrence: None)
  Receive Date: 20061012
  Receipt Date: 20061012
  Transmission Date: 20070319
  Serious: Yes (Hospitalization)
  Sender: FDA-Public Use
  Company Number: None

PATIENT
  Age: 87 Year
  Sex: Female

DRUGS (1)
  1. NIFEDIPINE [Suspect]
     Indication: HYPERTENSION
     Dosage: 10MG ONCE DAILY PO
     Route: 048
     Dates: start: 20060622, end: 20060626

REACTIONS (2)
  - FLUSHING [None]
  - SUPRAVENTRICULAR TACHYCARDIA [None]
